FAERS Safety Report 9775314 (Version 3)
Quarter: 2014Q1

REPORT INFORMATION
  Report Type: Spontaneous
  Country: US (occurrence: US)
  Receive Date: 20131220
  Receipt Date: 20140318
  Transmission Date: 20141002
  Serious: No
  Sender: FDA-Public Use
  Company Number: US-GALDERMA-US13003235

PATIENT
  Age: 45 Year
  Sex: Female

DRUGS (2)
  1. MIRVASO (BRIMONIDINE) TOPICAL GEL, 0.33% [Suspect]
     Indication: ROSACEA
     Route: 061
     Dates: start: 20131008, end: 20131008
  2. DOVE SOAP [Concomitant]
     Indication: THERAPEUTIC SKIN CARE TOPICAL

REACTIONS (10)
  - Skin irritation [Recovered/Resolved]
  - Hypersensitivity [Recovered/Resolved]
  - Urticaria [Recovered/Resolved]
  - Blister [Recovered/Resolved]
  - Swelling face [Recovered/Resolved]
  - Erythema [Recovered/Resolved]
  - Pruritus [Recovered/Resolved]
  - Skin burning sensation [Recovered/Resolved]
  - Rash papular [Recovered/Resolved]
  - Skin discomfort [Recovered/Resolved]
